FAERS Safety Report 4652108-3 (Version None)
Quarter: 2005Q2

REPORT INFORMATION
  Report Type: 
  Country: None (occurrence: None)
  Receive Date: 20050502
  Receipt Date: 20050419
  Transmission Date: 20051028
  Serious: Yes (Other)
  Sender: FDA-Public Use
  Company Number: 2005054080

PATIENT
  Sex: Male
  Weight: 133.8111 kg

DRUGS (11)
  1. VIAGRA [Suspect]
     Indication: ERECTILE DYSFUNCTION
     Dosage: 50 MG (50 MG, AS NECESSARY), ORAL
     Route: 048
  2. TIMOLOL MALEATE [Concomitant]
  3. CLONIDINE [Concomitant]
  4. ALLOPURINOL [Concomitant]
  5. ATENOLOL [Concomitant]
  6. FUROSEMIDE [Concomitant]
  7. GEMFIBROZIL [Concomitant]
  8. DOCUSATE SODIUM (DOCUSATE SODIUM) [Concomitant]
  9. GLIPIZIDE [Concomitant]
  10. CALCITRIOL [Concomitant]
  11. CALCIUM CARBONATE (CALCIUM CARBONATE) [Concomitant]

REACTIONS (2)
  - DRUG INEFFECTIVE [None]
  - RENAL CELL CARCINOMA STAGE UNSPECIFIED [None]
